FAERS Safety Report 6135572-2 (Version None)
Quarter: 2009Q1

REPORT INFORMATION
  Report Type: 
  Country: None (occurrence: None)
  Receive Date: 20090327
  Receipt Date: 20090323
  Transmission Date: 20090719
  Serious: Yes (Disabling, Other)
  Sender: FDA-Public Use
  Company Number: PHHY2009JP03893

PATIENT
  Sex: Male
  Weight: 80 kg

DRUGS (8)
  1. NEORAL [Suspect]
     Indication: DERMATITIS ATOPIC
     Dosage: 225 MG DAILY
     Route: 048
     Dates: start: 20081217, end: 20081224
  2. NEORAL [Suspect]
     Dosage: 125 MG DAILY
     Route: 048
     Dates: start: 20081225, end: 20090106
  3. NEORAL [Suspect]
     Dosage: 225 MG DAILY
     Route: 048
     Dates: start: 20090107, end: 20090121
  4. NEORAL [Suspect]
     Dosage: 225 MG DAILY
     Route: 048
     Dates: start: 20090128
  5. HIRUDOID [Concomitant]
     Indication: DERMATITIS ATOPIC
     Dosage: 10 G
     Route: 061
     Dates: start: 20030305
  6. ANTEBATE [Concomitant]
     Indication: DERMATITIS ATOPIC
     Dosage: 2 G
     Route: 061
     Dates: start: 20031027
  7. LOCOID [Concomitant]
     Indication: DERMATITIS ATOPIC
     Dosage: 1 G
     Route: 061
     Dates: start: 20030305
  8. ATARAX [Concomitant]
     Indication: DERMATITIS ATOPIC
     Dosage: 25 MG
     Route: 048
     Dates: start: 20030528, end: 20090220

REACTIONS (6)
  - ALANINE AMINOTRANSFERASE INCREASED [None]
  - ASPARTATE AMINOTRANSFERASE INCREASED [None]
  - BLOOD LACTATE DEHYDROGENASE INCREASED [None]
  - KAPOSI'S VARICELLIFORM ERUPTION [None]
  - VIRAL INFECTION [None]
  - WHITE BLOOD CELL COUNT INCREASED [None]
